FAERS Safety Report 25968941 (Version 1)
Quarter: 2025Q4

REPORT INFORMATION
  Report Type: Spontaneous
  Country: US (occurrence: None)
  Receive Date: 20251027
  Receipt Date: 20251027
  Transmission Date: 20260117
  Serious: Yes (Hospitalization)
  Sender: FDA-CTU
  Company Number: None

PATIENT
  Age: 63 Year
  Sex: Male

DRUGS (3)
  1. TAVNEOS [Suspect]
     Active Substance: AVACOPAN
     Route: 048
     Dates: start: 20241023
  2. TAVNEOS [Suspect]
     Active Substance: AVACOPAN
     Dates: start: 20241023
  3. INFLUENZA VIRUS VACCINE [Suspect]
     Active Substance: INFLUENZA VIRUS VACCINE

REACTIONS (3)
  - Granulomatosis with polyangiitis [None]
  - Condition aggravated [None]
  - Vaccination failure [None]

NARRATIVE: CASE EVENT DATE: 20251027
